FAERS Safety Report 9232890 (Version 1)
Quarter: 2013Q2

REPORT INFORMATION
  Report Type: Spontaneous
  Country: JP (occurrence: None)
  Receive Date: 20130412
  Receipt Date: 20130412
  Transmission Date: 20140414
  Serious: Yes (Other)
  Sender: FDA-Public Use
  Company Number: FK201301071

PATIENT
  Age: 43 Year
  Sex: Male

DRUGS (2)
  1. METHYLPREDNISOLONE [Suspect]
     Indication: NEPHROTIC SYNDROME
  2. PREDNISOLONE (PREDNISOLONE) [Suspect]
     Indication: NEPHROTIC SYNDROME
     Route: 048

REACTIONS (2)
  - Pneumonia necrotising [None]
  - Bacillus infection [None]
